FAERS Safety Report 10367054 (Version 1)
Quarter: 2014Q3

REPORT INFORMATION
  Report Type: Report from Study
  Country: US (occurrence: US)
  Receive Date: 20140807
  Receipt Date: 20140807
  Transmission Date: 20150326
  Serious: Yes (Other)
  Sender: FDA-Public Use
  Company Number: US-ROCHE-1445739

PATIENT
  Sex: Female
  Weight: 36.9 kg

DRUGS (3)
  1. NUTROPIN [Suspect]
     Active Substance: SOMATROPIN
     Indication: TURNER^S SYNDROME
     Dosage: STARTED A 2 YEARS OF AGE
     Route: 058
  2. TENORMIN [Concomitant]
     Active Substance: ATENOLOL
     Route: 048
  3. FLAXSEED [Concomitant]
     Active Substance: FLAX SEED
     Dosage: 1 EACH
     Route: 048

REACTIONS (5)
  - Impulse-control disorder [Unknown]
  - Melanocytic naevus [Unknown]
  - Food craving [Unknown]
  - Depressed mood [Unknown]
  - Aortic dilatation [Unknown]
